FAERS Safety Report 5175318-8 (Version None)
Quarter: 2006Q4

REPORT INFORMATION
  Report Type: 
  Country: None (occurrence: None)
  Receive Date: 20061212
  Receipt Date: 20061212
  Transmission Date: 20070319
  Serious: Yes (Hospitalization)
  Sender: FDA-Public Use
  Company Number: None

PATIENT
  Sex: Female
  Weight: 55.4 kg

DRUGS (3)
  1. CYCLOPHOSPHAMIDE [Suspect]
     Dosage: 1520 MG
     Dates: end: 20061104
  2. CYTARABINE [Suspect]
     Dosage: 9120 MG
     Dates: end: 20061206
  3. METHOTREXATE [Suspect]
     Dosage: 15 MG
     Dates: end: 20061103

REACTIONS (5)
  - CLOSTRIDIAL INFECTION [None]
  - GASTROINTESTINAL DISORDER [None]
  - INTESTINAL ISCHAEMIA [None]
  - NEUTROPENIC COLITIS [None]
  - PSEUDOMEMBRANOUS COLITIS [None]
